FAERS Safety Report 18001027 (Version 1)
Quarter: 2020Q3

REPORT INFORMATION
  Report Type: Spontaneous
  Country: CA (occurrence: CA)
  Receive Date: 20200709
  Receipt Date: 20200709
  Transmission Date: 20201103
  Serious: Yes (Hospitalization)
  Sender: FDA-Public Use
  Company Number: CA-TEVA-2020-CA-1798284

PATIENT
  Age: 56 Year
  Sex: Male

DRUGS (11)
  1. PACLITAXEL FOR INJECTION [Suspect]
     Active Substance: PACLITAXEL
     Indication: TRANSITIONAL CELL CARCINOMA
     Route: 042
  2. LIDOCAINE. [Concomitant]
     Active Substance: LIDOCAINE
  3. GEMCITABINE. [Suspect]
     Active Substance: GEMCITABINE
     Indication: TRANSITIONAL CELL CARCINOMA
     Route: 065
  4. CALCIUM + VITAMIN D [Concomitant]
     Active Substance: CALCIUM\VITAMIN D
  5. CARBOPLATIN INJECTION ? LIQ IV 10MG/ML [Suspect]
     Active Substance: CARBOPLATIN
     Indication: TRANSITIONAL CELL CARCINOMA
     Route: 042
  6. DEXAMETHASONE. [Concomitant]
     Active Substance: DEXAMETHASONE
  7. FAMOTIDINE. [Concomitant]
     Active Substance: FAMOTIDINE
  8. GRANISETRON [Concomitant]
     Active Substance: GRANISETRON
  9. PROCHLORPERAZINE. [Concomitant]
     Active Substance: PROCHLORPERAZINE
  10. ZOLEDRONIC ACID [Concomitant]
     Active Substance: ZOLEDRONIC ACID
  11. ONDANSETRON [Concomitant]
     Active Substance: ONDANSETRON

REACTIONS (3)
  - Neutropenia [Unknown]
  - Pancytopenia [Unknown]
  - Pyrexia [Unknown]
